FAERS Safety Report 7603089-1 (Version None)
Quarter: 2011Q3

REPORT INFORMATION
  Report Type: 
  Country: None (occurrence: None)
  Receive Date: 20110712
  Receipt Date: 20110623
  Transmission Date: 20111222
  Serious: No
  Sender: FDA-Public Use
  Company Number: US-B.I. PHARMACEUTICALS,INC./RIDGEFIELD-2011-BP-10083BP

PATIENT
  Sex: Female

DRUGS (7)
  1. VITAMIN D [Concomitant]
     Indication: PROPHYLAXIS
     Route: 054
  2. NEXIUM [Concomitant]
     Indication: ABDOMINAL DISCOMFORT
     Route: 048
  3. PRADAXA [Suspect]
     Indication: ANTICOAGULANT THERAPY
  4. SYNTHROID [Concomitant]
     Indication: THYROID DISORDER
     Route: 048
  5. PRADAXA [Suspect]
     Indication: AORTIC VALVE DISEASE
     Dosage: 150 MG
     Route: 048
     Dates: start: 20110114, end: 20110520
  6. POTASSIUM CHLORIDE [Concomitant]
     Indication: PROPHYLAXIS
     Route: 048
  7. LASIX [Concomitant]

REACTIONS (6)
  - EYE PRURITUS [None]
  - PRURITUS GENERALISED [None]
  - PRURITUS [None]
  - ABDOMINAL PAIN LOWER [None]
  - EYE IRRITATION [None]
  - RASH [None]
